FAERS Safety Report 23878649 (Version 3)
Quarter: 2025Q1

REPORT INFORMATION
  Report Type: Spontaneous
  Country: CN (occurrence: CN)
  Receive Date: 20240521
  Receipt Date: 20250207
  Transmission Date: 20250408
  Serious: Yes (Life-Threatening, Other)
  Sender: PHARMACOSMOS A/S
  Company Number: CN-ADR-3502031025890202401807

PATIENT
  Age: 74 Year
  Sex: Male

DRUGS (5)
  1. TRILACICLIB [Suspect]
     Active Substance: TRILACICLIB
     Indication: Lung neoplasm
     Dates: start: 20240426, end: 20240426
  2. CAMRELIZUMAB [Suspect]
     Active Substance: CAMRELIZUMAB
     Indication: Lung neoplasm
     Dates: start: 20240426, end: 20240427
  3. PACLITAXEL [Suspect]
     Active Substance: PACLITAXEL
     Indication: Lung neoplasm
     Dates: start: 20240426, end: 20240426
  4. BEVACIZUMAB [Suspect]
     Active Substance: BEVACIZUMAB
     Indication: Lung neoplasm
     Dates: start: 20240426, end: 20240427
  5. CISPLATIN [Suspect]
     Active Substance: CISPLATIN
     Indication: Lung neoplasm
     Dates: start: 20240426, end: 20240427

REACTIONS (3)
  - Granulocyte count decreased [Recovering/Resolving]
  - Platelet count decreased [Recovering/Resolving]
  - White blood cell count decreased [Recovering/Resolving]

NARRATIVE: CASE EVENT DATE: 20240504
